FAERS Safety Report 25245683 (Version 3)
Quarter: 2025Q2

REPORT INFORMATION
  Report Type: Report from Study
  Country: GB (occurrence: GB)
  Receive Date: 20250428
  Receipt Date: 20250618
  Transmission Date: 20250716
  Serious: Yes (Hospitalization)
  Sender: ABBVIE
  Company Number: GB-ABBVIE-6253388

PATIENT
  Age: 77 Year
  Sex: Female

DRUGS (2)
  1. HUMIRA [Suspect]
     Active Substance: ADALIMUMAB
     Indication: Rheumatoid arthritis
     Dosage: DOSE FORM- SOLUTION FOR INJECTION IN PRE-FILLED PEN
     Route: 058
  2. HUMIRA [Suspect]
     Active Substance: ADALIMUMAB
     Dosage: DOSE FORM- SOLUTION FOR INJECTION IN PRE-FILLED PEN
     Route: 058
     Dates: start: 2025

REACTIONS (4)
  - Ulcerative keratitis [Recovering/Resolving]
  - Eye infection [Unknown]
  - Lower respiratory tract infection [Unknown]
  - Spinal stenosis [Unknown]
